FAERS Safety Report 10544205 (Version 1)
Quarter: 2014Q4

REPORT INFORMATION
  Report Type: Spontaneous
  Country: US (occurrence: US)
  Receive Date: 20141027
  Receipt Date: 20141027
  Transmission Date: 20150529
  Serious: Yes (Hospitalization)
  Sender: FDA-Public Use
  Company Number: PHHY2014US135093

PATIENT
  Age: 22 Year
  Sex: Male

DRUGS (16)
  1. HALOPERIDOL. [Concomitant]
     Active Substance: HALOPERIDOL
     Indication: SEDATION
     Route: 065
  2. LORAZEPAM. [Suspect]
     Active Substance: LORAZEPAM
     Route: 040
  3. METHADONE [Concomitant]
     Active Substance: METHADONE HYDROCHLORIDE
     Indication: SEDATION
     Dosage: 10 MG, Q6H
     Route: 042
  4. COLISTIN SULFATE [Concomitant]
     Active Substance: COLISTIN SULFATE
     Indication: PNEUMONIA STAPHYLOCOCCAL
  5. COLISTIN SULFATE [Concomitant]
     Active Substance: COLISTIN SULFATE
     Indication: ACINETOBACTER INFECTION
  6. LORAZEPAM. [Suspect]
     Active Substance: LORAZEPAM
     Indication: PROPHYLAXIS
     Dosage: 28 MG, QD (TOTAL)
     Route: 040
  7. FENTANYL. [Concomitant]
     Active Substance: FENTANYL
     Indication: SEDATION
     Route: 041
  8. FENTANYL. [Concomitant]
     Active Substance: FENTANYL
     Indication: SEDATION
     Dosage: 300 UG/HR, UNK
     Route: 065
  9. LINEZOLID. [Concomitant]
     Active Substance: LINEZOLID
     Indication: PNEUMONIA
     Route: 065
  10. LINEZOLID. [Concomitant]
     Active Substance: LINEZOLID
     Indication: PNEUMONIA STAPHYLOCOCCAL
  11. LINEZOLID. [Concomitant]
     Active Substance: LINEZOLID
     Indication: ACINETOBACTER INFECTION
  12. COLISTIN SULFATE [Concomitant]
     Active Substance: COLISTIN SULFATE
     Indication: PNEUMONIA
     Route: 065
  13. DIAZEPAM. [Suspect]
     Active Substance: DIAZEPAM
     Indication: PRODUCT USED FOR UNKNOWN INDICATION
     Route: 065
  14. PROPOFOL. [Concomitant]
     Active Substance: PROPOFOL
     Indication: SEDATION
     Route: 041
  15. MIDAZOLAM [Concomitant]
     Active Substance: MIDAZOLAM\MIDAZOLAM HYDROCHLORIDE
     Indication: SEDATION
     Dosage: 10 MG/H, CONTINUOUS
     Route: 041
  16. CLONIDINE. [Concomitant]
     Active Substance: CLONIDINE
     Indication: SEDATION
     Dosage: 0.2 MG, QW
     Route: 062

REACTIONS (6)
  - Delirium [Recovered/Resolved]
  - Agitation [Recovered/Resolved]
  - Aggression [Recovered/Resolved]
  - Tachycardia [Recovered/Resolved]
  - Tachypnoea [Recovered/Resolved]
  - Oxygen saturation decreased [Recovered/Resolved]
